FAERS Safety Report 5581495-7 (Version None)
Quarter: 2008Q1

REPORT INFORMATION
  Report Type: 
  Country: None (occurrence: None)
  Receive Date: 20080103
  Receipt Date: 20080103
  Transmission Date: 20080703
  Serious: Yes (Hospitalization)
  Sender: FDA-Public Use
  Company Number: None

PATIENT
  Age: 47 Year
  Sex: Female
  Weight: 72.8 kg

DRUGS (2)
  1. BEVACIZUMAB 10MG/KG [Suspect]
     Indication: BREAST CANCER STAGE IV
     Dosage: 697MG EVERY TWO WEEKS IV
     Route: 042
     Dates: start: 20071128, end: 20071219
  2. VINORELBINE 25MG/M2 [Suspect]
     Indication: BREAST CANCER STAGE IV
     Dosage: 44MG WEEKLY 3 OR 4 IV
     Route: 042
     Dates: start: 20071128, end: 20071219

REACTIONS (15)
  - BRAIN OEDEMA [None]
  - EXOSTOSIS [None]
  - HYPERTROPHY [None]
  - INTERVERTEBRAL DISC SPACE NARROWING [None]
  - LYMPHADENOPATHY MEDIASTINAL [None]
  - MALIGNANT NEOPLASM PROGRESSION [None]
  - MASTOID DISORDER [None]
  - METASTASES TO CENTRAL NERVOUS SYSTEM [None]
  - METASTASES TO LIVER [None]
  - METASTASES TO LUNG [None]
  - METASTASES TO SPINE [None]
  - NEURILEMMOMA MALIGNANT [None]
  - SINUS DISORDER [None]
  - SPINAL DISORDER [None]
  - SPINAL OSTEOARTHRITIS [None]
